FAERS Safety Report 6345156-9 (Version None)
Quarter: 2009Q3

REPORT INFORMATION
  Report Type: 
  Country: None (occurrence: None)
  Receive Date: 20090909
  Receipt Date: 20070720
  Transmission Date: 20100115
  Serious: Yes (Other)
  Sender: FDA-Public Use
  Company Number: US-ASTRAZENECA-2007UW01729

PATIENT
  Age: 11731 Day
  Sex: Female
  Weight: 116.1 kg

DRUGS (16)
  1. SEROQUEL [Suspect]
     Indication: BIPOLAR DISORDER
     Route: 048
     Dates: start: 19971201, end: 20080101
  2. SEROQUEL [Suspect]
     Indication: SLEEP DISORDER
     Route: 048
     Dates: start: 19971201, end: 20080101
  3. SEROQUEL [Suspect]
     Dosage: 25-300MG
     Route: 048
     Dates: start: 20031120
  4. SEROQUEL [Suspect]
     Dosage: 25-300MG
     Route: 048
     Dates: start: 20031120
  5. PROZAC [Concomitant]
  6. NEXIUM [Concomitant]
  7. ABILIFY [Concomitant]
  8. LIPITOR [Concomitant]
     Dosage: TWO TIMES A DAY
  9. METOPROLOL [Concomitant]
  10. LISINOPRIL [Concomitant]
  11. ASPIRIN [Concomitant]
  12. KEPPRA [Concomitant]
     Dosage: TWO TIMES A DAY
  13. HUMULIN 70/30 [Concomitant]
     Dosage: 50U, UNKNOWN
  14. TEGRETOL [Concomitant]
     Dosage: TWO TIMES A DAY
  15. ZYPREXA [Concomitant]
     Dates: start: 19980507
  16. DEPAKOTE [Concomitant]
     Dosage: 250-1500MG
     Dates: start: 19980507, end: 20070626

REACTIONS (9)
  - ARTERIOSCLEROSIS CORONARY ARTERY [None]
  - CARDIOMEGALY [None]
  - CARDIOMYOPATHY [None]
  - CONVULSION [None]
  - CORONARY ARTERY DISEASE [None]
  - DIABETIC KETOACIDOSIS [None]
  - MALAISE [None]
  - TYPE 1 DIABETES MELLITUS [None]
  - TYPE 2 DIABETES MELLITUS [None]
